FAERS Safety Report 20902581 (Version 4)
Quarter: 2022Q4

REPORT INFORMATION
  Report Type: Report from Study
  Country: CA (occurrence: CA)
  Receive Date: 20220601
  Receipt Date: 20221214
  Transmission Date: 20230112
  Serious: Yes (Other)
  Sender: FDA-Public Use
  Company Number: CA-NOVARTISPH-NVSC2022CA125601

PATIENT
  Age: 57 Year
  Sex: Male

DRUGS (3)
  1. MONTELUKAST [Suspect]
     Active Substance: MONTELUKAST SODIUM
     Indication: Product used for unknown indication
     Dosage: UNK
     Route: 065
  2. ALBUTEROL [Suspect]
     Active Substance: ALBUTEROL
     Indication: Asthma
     Dosage: UNK, PRN
     Route: 065
  3. ALBUTEROL [Suspect]
     Active Substance: ALBUTEROL
     Dosage: 100 UG, QD
     Dates: start: 2015

REACTIONS (13)
  - Interstitial lung disease [Unknown]
  - Obstructive airways disorder [Unknown]
  - Dyspnoea [Unknown]
  - Anaemia [Unknown]
  - Emphysema [Unknown]
  - Pulmonary vascular disorder [Unknown]
  - Wheezing [Unknown]
  - Chest discomfort [Unknown]
  - Sensitivity to weather change [Unknown]
  - Sleep disorder [Unknown]
  - Condition aggravated [Unknown]
  - Asthma [Unknown]
  - Hypersensitivity [Unknown]
